FAERS Safety Report 14388305 (Version 2)
Quarter: 2018Q4

REPORT INFORMATION
  Report Type: Spontaneous
  Country: US (occurrence: US)
  Receive Date: 20180115
  Receipt Date: 20181011
  Transmission Date: 20190204
  Serious: Yes (Other)
  Sender: FDA-Public Use
  Company Number: US-SA-2017SA213351

PATIENT
  Age: 42 Year
  Sex: Female
  Weight: 113.39 kg

DRUGS (6)
  1. PERJETA [Concomitant]
     Active Substance: PERTUZUMAB
  2. TAXOTERE [Suspect]
     Active Substance: DOCETAXEL
     Dosage: 152-180MG,Q3W
     Route: 051
     Dates: start: 20140605, end: 20140605
  3. NEOSAR [Concomitant]
     Active Substance: CYCLOPHOSPHAMIDE
  4. TAXOTERE [Suspect]
     Active Substance: DOCETAXEL
     Indication: BREAST CANCER FEMALE
     Dosage: 152-180MG,Q3W
     Route: 042
     Dates: start: 20140313, end: 20140313
  5. HERCEPTIN [Concomitant]
     Active Substance: TRASTUZUMAB
  6. PARAPLATIN [Concomitant]
     Active Substance: CARBOPLATIN

REACTIONS (2)
  - Alopecia [Recovering/Resolving]
  - Psychological trauma [Unknown]

NARRATIVE: CASE EVENT DATE: 201403
